FAERS Safety Report 23341642 (Version 1)
Quarter: 2023Q4

REPORT INFORMATION
  Report Type: Spontaneous
  Country: US (occurrence: US)
  Receive Date: 20231227
  Receipt Date: 20231227
  Transmission Date: 20240110
  Serious: No
  Sender: FDA-Public Use
  Company Number: US-BRISTOL-MYERS SQUIBB COMPANY-2023-187807

PATIENT
  Age: 86 Year
  Sex: Female
  Weight: 61.69 kg

DRUGS (1)
  1. REVLIMID [Suspect]
     Active Substance: LENALIDOMIDE
     Indication: Plasma cell myeloma
     Route: 048
     Dates: start: 20231101

REACTIONS (4)
  - Respiratory tract congestion [Recovering/Resolving]
  - Epistaxis [Recovering/Resolving]
  - Cough [Recovering/Resolving]
  - Muscle spasms [Recovering/Resolving]
